FAERS Safety Report 10072043 (Version 2)
Quarter: 2014Q2

REPORT INFORMATION
  Report Type: Report from Study
  Country: BR (occurrence: BR)
  Receive Date: 20140411
  Receipt Date: 20140411
  Transmission Date: 20141212
  Serious: Yes (Hospitalization, Disabling)
  Sender: FDA-Public Use
  Company Number: BR-ROCHE-1180906

PATIENT
  Age: 74 Year
  Sex: Female
  Weight: 57 kg

DRUGS (14)
  1. ACTEMRA [Suspect]
     Indication: RHEUMATOID ARTHRITIS
     Route: 065
     Dates: start: 20121204
  2. MELOXICAM [Concomitant]
  3. ATACAND [Concomitant]
  4. SELOZOK [Concomitant]
  5. PREDNISONE [Concomitant]
  6. ENDOFOLIN [Concomitant]
  7. CALCIUM CARBONATE [Concomitant]
  8. FRONTAL [Concomitant]
  9. LIPITOR [Concomitant]
  10. SIMVASTATIN [Concomitant]
  11. HYDROXYZINE [Concomitant]
  12. INDAPEN [Concomitant]
  13. AMLODIPINE [Concomitant]
  14. VITAMIN C [Concomitant]

REACTIONS (9)
  - Hypertension [Recovered/Resolved]
  - Musculoskeletal stiffness [Unknown]
  - Arthralgia [Not Recovered/Not Resolved]
  - Peripheral swelling [Not Recovered/Not Resolved]
  - Subcutaneous abscess [Recovered/Resolved]
  - Vision blurred [Recovered/Resolved]
  - Swelling [Recovering/Resolving]
  - Tendon rupture [Recovering/Resolving]
  - Fall [Unknown]
